FAERS Safety Report 8987542 (Version 2)
Quarter: 2013Q1

REPORT INFORMATION
  Report Type: Spontaneous
  Country: GB (occurrence: GB)
  Receive Date: 20121227
  Receipt Date: 20130205
  Transmission Date: 20140127
  Serious: Yes (Other)
  Sender: FDA-Public Use
  Company Number: GB-BAYER-2012-133104

PATIENT
  Sex: 0

DRUGS (1)
  1. NEXAVAR [Suspect]

REACTIONS (1)
  - Uveitis [None]
